FAERS Safety Report 7476502-0 (Version None)
Quarter: 2011Q2

REPORT INFORMATION
  Report Type: 
  Country: None (occurrence: None)
  Receive Date: 20110512
  Receipt Date: 20110422
  Transmission Date: 20111010
  Serious: No
  Sender: FDA-Public Use
  Company Number: US-B.I. PHARMACEUTICALS,INC./RIDGEFIELD-2011-BP-09033BP

PATIENT
  Sex: Female

DRUGS (6)
  1. CARAFATE [Concomitant]
  2. DIGOXIN [Concomitant]
  3. PRADAXA [Suspect]
     Indication: ATRIAL FIBRILLATION
     Dosage: 300 MG
     Route: 048
     Dates: start: 20110201, end: 20110313
  4. DILTIAZEM [Concomitant]
  5. CHOLESTYRAMINE [Concomitant]
  6. LOSARTAN [Concomitant]

REACTIONS (3)
  - THROAT IRRITATION [None]
  - RECTAL HAEMORRHAGE [None]
  - DYSPEPSIA [None]
